FAERS Safety Report 20111526 (Version 1)
Quarter: 2021Q4

REPORT INFORMATION
  Report Type: Spontaneous
  Country: US (occurrence: US)
  Receive Date: 20211125
  Receipt Date: 20211125
  Transmission Date: 20220304
  Serious: No
  Sender: FDA-Public Use
  Company Number: MIQ-08182021-1814

PATIENT

DRUGS (2)
  1. IVERMECTIN [Suspect]
     Active Substance: IVERMECTIN
     Indication: COVID-19 prophylaxis
     Dosage: 1 PILL, QD (ONE PACK)
     Route: 065
     Dates: start: 2021, end: 2021
  2. IVERMECTIN [Suspect]
     Active Substance: IVERMECTIN
     Dosage: 1 PILL, QD (ONE PACK)
     Route: 065
     Dates: start: 2021

REACTIONS (4)
  - Oropharyngeal pain [Unknown]
  - Gastrointestinal disorder [Unknown]
  - Pyrexia [Unknown]
  - Product use in unapproved indication [Not Recovered/Not Resolved]

NARRATIVE: CASE EVENT DATE: 20210101
